FAERS Safety Report 6004773-6 (Version None)
Quarter: 2008Q4

REPORT INFORMATION
  Report Type: 
  Country: None (occurrence: None)
  Receive Date: 20081216
  Receipt Date: 20081210
  Transmission Date: 20090506
  Serious: Yes (Other)
  Sender: FDA-Public Use
  Company Number: US-SANOFI-SYNTHELABO-A03200801942

PATIENT
  Sex: Female
  Weight: 90.7 kg

DRUGS (6)
  1. TYLENOL (CAPLET) [Suspect]
     Indication: DRUG USE FOR UNKNOWN INDICATION
     Dosage: TOOK AT 4 AM
     Route: 048
  2. MIRAPEX [Concomitant]
     Indication: RESTLESS LEGS SYNDROME
     Dosage: UNK
     Route: 048
  3. ZOLPIDEM [Suspect]
     Indication: INSOMNIA
     Route: 048
     Dates: start: 20080516, end: 20080518
  4. CENTRUM SILVER [Concomitant]
     Indication: VITAMIN SUPPLEMENTATION
     Dosage: UNK
     Route: 065
  5. ALEVE [Concomitant]
     Indication: ARTHRALGIA
     Route: 065
  6. SYNTHROID [Concomitant]
     Indication: HYPOTHYROIDISM
     Dosage: UNK
     Route: 065

REACTIONS (5)
  - AMNESIA [None]
  - IMPAIRED DRIVING ABILITY [None]
  - ROAD TRAFFIC ACCIDENT [None]
  - SLEEP TALKING [None]
  - SOMNAMBULISM [None]
